FAERS Safety Report 9842734 (Version 1)
Quarter: 2013Q4

REPORT INFORMATION
  Report Type: Spontaneous
  Country: US (occurrence: None)
  Receive Date: 20131223
  Receipt Date: 20131223
  Transmission Date: 20140711
  Serious: Yes (Other)
  Sender: FDA-Public Use
  Company Number: 218586LEO

PATIENT
  Age: 61 Year
  Sex: Female

DRUGS (2)
  1. PICATO (0.015%, GEL) [Suspect]
     Dosage: 1 IN 1 D, TOPICAL
     Route: 061
     Dates: start: 20120807, end: 20120809
  2. PICATO (0.05%, GEL) [Suspect]
     Dosage: 1 IN 1 D, TOPICAL
     Route: 061
     Dates: start: 20120807, end: 20120808

REACTIONS (5)
  - Erythema [None]
  - Pruritus [None]
  - Drug administration error [None]
  - Drug administered at inappropriate site [None]
  - Inappropriate schedule of drug administration [None]
